FAERS Safety Report 6209287-6 (Version None)
Quarter: 2009Q2

REPORT INFORMATION
  Report Type: 
  Country: None (occurrence: None)
  Receive Date: 20090529
  Receipt Date: 20090526
  Transmission Date: 20091009
  Serious: Yes (Life-Threatening, Hospitalization)
  Sender: FDA-Public Use
  Company Number: US-SANOFI-SYNTHELABO-F01200900507

PATIENT
  Sex: Male

DRUGS (10)
  1. GENERIC UNKNOWN [Concomitant]
     Dosage: UNK
     Route: 065
     Dates: start: 20071017
  2. MULTI-VITAMIN [Concomitant]
     Dosage: UNK
     Route: 065
     Dates: start: 20080130
  3. GENERIC UNKNOWN [Concomitant]
     Dosage: UNK
     Route: 065
     Dates: start: 20080213
  4. BACTRIM [Concomitant]
     Dosage: UNK
     Route: 065
     Dates: start: 20071227
  5. IMODIUM [Concomitant]
     Dosage: UNK
     Route: 065
     Dates: start: 20071017
  6. VICODIN [Concomitant]
     Dosage: UNK
     Route: 065
     Dates: start: 20070926
  7. GENERIC UNKNOWN [Concomitant]
     Dosage: UNK
     Route: 065
     Dates: start: 20070810
  8. BEVACIZUMAB [Suspect]
     Route: 042
  9. CAPECITABINE [Suspect]
     Route: 048
  10. OXALIPLATIN [Suspect]
     Indication: COLORECTAL CANCER METASTATIC
     Route: 041

REACTIONS (1)
  - HEPATIC ENCEPHALOPATHY [None]
